FAERS Safety Report 10347658 (Version 1)
Quarter: 2014Q3

REPORT INFORMATION
  Report Type: Spontaneous
  Country: FR (occurrence: FR)
  Receive Date: 20140729
  Receipt Date: 20140729
  Transmission Date: 20150326
  Serious: Yes (Death, Life-Threatening, Hospitalization, Other)
  Sender: FDA-Public Use
  Company Number: FR-ACTELION-A-CH2014-102710

PATIENT
  Age: 44 Year
  Sex: Female

DRUGS (9)
  1. IMUREL [Concomitant]
     Active Substance: AZATHIOPRINE SODIUM
     Dosage: 100 MG, QD
     Dates: start: 2000, end: 20140516
  2. TRACLEER [Suspect]
     Active Substance: BOSENTAN\BOSENTAN MONOHYDRATE
     Indication: PULMONARY ARTERIAL HYPERTENSION
     Dosage: 125 MG, BID
     Route: 048
     Dates: start: 201307, end: 20140605
  3. ADCIRCA [Concomitant]
     Active Substance: TADALAFIL
     Dosage: 40 MG, QD
     Dates: start: 20130628, end: 20140530
  4. URSOLVAN [Concomitant]
     Active Substance: URSODIOL
  5. DIFFU-K [Concomitant]
     Active Substance: POTASSIUM CHLORIDE
  6. ATARAX [Concomitant]
     Active Substance: HYDROXYZINE\HYDROXYZINE HYDROCHLORIDE
  7. LEVOTHYROX [Concomitant]
     Active Substance: LEVOTHYROXINE
  8. CORTANCYL [Concomitant]
     Active Substance: PREDNISONE
     Dosage: 7.5 MG, QD
  9. TRACLEER [Suspect]
     Active Substance: BOSENTAN\BOSENTAN MONOHYDRATE
     Dosage: 62.5 MG, BID
     Route: 048
     Dates: start: 20130628, end: 201307

REACTIONS (16)
  - Infection [Unknown]
  - Lymphocyte count decreased [Unknown]
  - Multi-organ failure [Fatal]
  - Shock [Unknown]
  - Pancytopenia [Unknown]
  - Hyperbilirubinaemia [Unknown]
  - Acute hepatic failure [Unknown]
  - Pulmonary arterial hypertension [Unknown]
  - Agranulocytosis [Fatal]
  - Potentiating drug interaction [Unknown]
  - Right ventricular failure [Unknown]
  - Overdose [Unknown]
  - Leukopenia [Unknown]
  - Neutropenia [Unknown]
  - Condition aggravated [Unknown]
  - Inhibitory drug interaction [Fatal]

NARRATIVE: CASE EVENT DATE: 201310
